FAERS Safety Report 8953169 (Version 2)
Quarter: 2012Q4

REPORT INFORMATION
  Report Type: 
  Country: ES (occurrence: ES)
  Receive Date: 20121205
  Receipt Date: 20121218
  Transmission Date: 20130627
  Serious: Yes (Other)
  Sender: FDA-Public Use
  Company Number: ES-UCBSA-072029

PATIENT
  Age: 21 Year
  Sex: Female

DRUGS (4)
  1. LEVETIRACETAM [Suspect]
     Indication: JUVENILE MYOCLONIC EPILEPSY
  2. LEVETIRACETAM [Suspect]
     Indication: JUVENILE MYOCLONIC EPILEPSY
     Dosage: unknown dose, dose preogressively increased
  3. VALPROIC ACID [Concomitant]
     Indication: JUVENILE MYOCLONIC EPILEPSY
  4. LAMOTRIGINE [Concomitant]
     Indication: JUVENILE MYOCLONIC EPILEPSY

REACTIONS (2)
  - Myoclonus [Recovered/Resolved]
  - Grand mal convulsion [Recovered/Resolved]
